FAERS Safety Report 19311880 (Version 2)
Quarter: 2021Q3

REPORT INFORMATION
  Report Type: Report from Study
  Country: None (occurrence: US)
  Receive Date: 20210527
  Receipt Date: 20210802
  Transmission Date: 20211014
  Serious: Yes (Other)
  Sender: FDA-Public Use
  Company Number: US-ABBVIE-21K-163-3855123-00

PATIENT
  Sex: Female

DRUGS (1)
  1. HUMIRA [Suspect]
     Active Substance: ADALIMUMAB
     Indication: RHEUMATOID ARTHRITIS
     Route: 058
     Dates: start: 20210312

REACTIONS (19)
  - Loss of personal independence in daily activities [Not Recovered/Not Resolved]
  - Joint stiffness [Not Recovered/Not Resolved]
  - Myalgia [Unknown]
  - Pain in extremity [Unknown]
  - Dry eye [Unknown]
  - Night sweats [Unknown]
  - Musculoskeletal discomfort [Unknown]
  - Therapeutic product effect variable [Unknown]
  - Loss of consciousness [Unknown]
  - Joint swelling [Recovering/Resolving]
  - Back pain [Unknown]
  - Infection [Unknown]
  - Cataract [Unknown]
  - Dehydration [Unknown]
  - Gait disturbance [Not Recovered/Not Resolved]
  - Swelling [Unknown]
  - Arthralgia [Recovering/Resolving]
  - Limb discomfort [Unknown]
  - Peripheral swelling [Unknown]

NARRATIVE: CASE EVENT DATE: 2021
